FAERS Safety Report 18699698 (Version 1)
Quarter: 2021Q1

REPORT INFORMATION
  Report Type: Other
  Country: GB (occurrence: GB)
  Receive Date: 20210105
  Receipt Date: 20210105
  Transmission Date: 20210419
  Serious: Yes (Other)
  Sender: FDA-Public Use
  Company Number: GB-ASTELLAS-2020US045292

PATIENT
  Age: 72 Year
  Sex: Female

DRUGS (6)
  1. SOLIFENACIN [Suspect]
     Active Substance: SOLIFENACIN
     Indication: PRODUCT USED FOR UNKNOWN INDICATION
     Dosage: ONE TO BE TAKEN EACH DAY, ONCE DAILY
     Route: 065
     Dates: start: 20200901
  2. RAMIPRIL. [Concomitant]
     Active Substance: RAMIPRIL
     Indication: PRODUCT USED FOR UNKNOWN INDICATION
     Dosage: (ONE TO BE TAKEN EACH DAY) ONCE DAILY
     Route: 065
     Dates: start: 20201014
  3. TRIMOVATE [CLOBETASONE BUTYRATE;NYSTATIN;OXYTETRACYCLINE CALCIUM] [Concomitant]
     Indication: PRODUCT USED FOR UNKNOWN INDICATION
     Dosage: 30 G, THRICE DAILY, (APPLY THREE TIMES/DAY)
     Route: 065
     Dates: start: 20200914
  4. NITROFURANTOIN. [Concomitant]
     Active Substance: NITROFURANTOIN
     Indication: PRODUCT USED FOR UNKNOWN INDICATION
     Dosage: (ONE TO BE TAKEN TWICE A DAY) TWICE DAILY
     Route: 065
     Dates: start: 20200914, end: 20201013
  5. MIRABEGRON [Concomitant]
     Active Substance: MIRABEGRON
     Indication: PRODUCT USED FOR UNKNOWN INDICATION
     Dosage: (ONE TO BE TAKEN EACH DAY AS PER UROLOGIST ADVICE) ONCE DAILY
     Route: 065
     Dates: start: 20201013, end: 20201020
  6. ATENOLOL. [Concomitant]
     Active Substance: ATENOLOL
     Indication: PRODUCT USED FOR UNKNOWN INDICATION
     Dosage: (ONE TO BE TAKEN EACH DAY) ONCE DAILY
     Route: 065
     Dates: start: 20201014

REACTIONS (3)
  - Cystitis [Unknown]
  - Type 2 diabetes mellitus [Not Recovered/Not Resolved]
  - Essential hypertension [Not Recovered/Not Resolved]

NARRATIVE: CASE EVENT DATE: 20201014
